FAERS Safety Report 9366452 (Version 1)
Quarter: 2013Q2

REPORT INFORMATION
  Report Type: Spontaneous
  Country: US (occurrence: US)
  Receive Date: 20130625
  Receipt Date: 20130625
  Transmission Date: 20140414
  Serious: Yes (Other)
  Sender: FDA-Public Use
  Company Number: US-SANOFI-AVENTIS-2013SA062644

PATIENT
  Age: 61 Year
  Sex: Female

DRUGS (2)
  1. OXALIPLATIN [Suspect]
     Route: 042
     Dates: end: 20120924
  2. CAPECITABINE [Suspect]
     Dates: end: 20120924

REACTIONS (2)
  - Blindness unilateral [Unknown]
  - Platelet count decreased [Unknown]
